FAERS Safety Report 10374672 (Version 2)
Quarter: 2025Q1

REPORT INFORMATION
  Report Type: Report from Study
  Country: US (occurrence: US)
  Receive Date: 20140811
  Receipt Date: 20250210
  Transmission Date: 20250409
  Serious: Yes (Disabling, Other)
  Sender: AMGEN
  Company Number: US-AMGEN-USASP2014060310

PATIENT
  Age: 53 Year
  Sex: Female

DRUGS (11)
  1. ENBREL [Suspect]
     Active Substance: ETANERCEPT
     Indication: Rheumatoid arthritis
     Dosage: 50 MILLIGRAM, QWK
     Route: 058
     Dates: start: 20090930, end: 20130901
  2. ENBREL [Suspect]
     Active Substance: ETANERCEPT
     Dosage: 50 MILLIGRAM, QWK
     Route: 058
  3. PREDNISONE [Suspect]
     Active Substance: PREDNISONE
     Indication: Product used for unknown indication
     Route: 048
  4. DOXYCYCLINE HYCLATE [Concomitant]
     Active Substance: DOXYCYCLINE HYCLATE
     Indication: Post procedural infection
     Dosage: 100 MILLIGRAM, BID
     Route: 048
  5. VITAMIN D2 [Concomitant]
     Active Substance: ERGOCALCIFEROL
     Dosage: 1250 MICROGRAM, QWK
     Route: 048
  6. ESCITALOPRAM [Concomitant]
     Active Substance: ESCITALOPRAM OXALATE
     Dosage: 10 MILLIGRAM, QD
     Route: 048
  7. ESCITALOPRAM [Concomitant]
     Active Substance: ESCITALOPRAM OXALATE
     Dosage: 20 MILLIGRAM, QD
     Route: 048
  8. MESALAMINE [Concomitant]
     Active Substance: MESALAMINE
     Dosage: 1.2 GRAM, BID
     Route: 048
  9. PANTOPRAZOLE [Concomitant]
     Active Substance: PANTOPRAZOLE
     Dosage: 40 MILLIGRAM, QD
     Route: 048
  10. ROSUVASTATIN [Concomitant]
     Active Substance: ROSUVASTATIN
     Dosage: 10 MILLIGRAM, QD, AT BED TIME
     Route: 048
  11. TRAMADOL [Concomitant]
     Active Substance: TRAMADOL
     Indication: Pain management
     Dosage: 50 MILLIGRAM, Q6H
     Route: 048

REACTIONS (11)
  - Breast cancer [Not Recovered/Not Resolved]
  - Gait disturbance [Unknown]
  - Cerebrovascular accident [Unknown]
  - Nephrolithiasis [Unknown]
  - Foot deformity [Unknown]
  - Restless legs syndrome [Unknown]
  - Aneurysm [Unknown]
  - Arthropathy [Unknown]
  - Arthritis [Unknown]
  - Balance disorder [Unknown]
  - Urinary incontinence [Unknown]

NARRATIVE: CASE EVENT DATE: 20130901
